FAERS Safety Report 21254167 (Version 2)
Quarter: 2022Q3

REPORT INFORMATION
  Report Type: Report from Study
  Country: DE (occurrence: DE)
  Receive Date: 20220825
  Receipt Date: 20220909
  Transmission Date: 20221027
  Serious: Yes (Other)
  Sender: FDA-Public Use
  Company Number: DE-ALNYLAM PHARMACEUTICALS, INC.-ALN-2022-002864

PATIENT

DRUGS (1)
  1. ONPATTRO [Suspect]
     Active Substance: PATISIRAN SODIUM
     Indication: Product used for unknown indication
     Dosage: UNK, 19, Q3W
     Route: 042
     Dates: start: 20220810

REACTIONS (3)
  - Fall [Unknown]
  - Diarrhoea [Unknown]
  - Joint injury [Unknown]

NARRATIVE: CASE EVENT DATE: 20220810
